FAERS Safety Report 6030893-6 (Version None)
Quarter: 2009Q1

REPORT INFORMATION
  Report Type: 
  Country: None (occurrence: None)
  Receive Date: 20090106
  Receipt Date: 20081224
  Transmission Date: 20090719
  Serious: Yes (Other)
  Sender: FDA-Public Use
  Company Number: 2008SP026133

PATIENT
  Age: 51 Year
  Sex: Female
  Weight: 77.1115 kg

DRUGS (2)
  1. PEG-INTRON [Suspect]
     Indication: HEPATITIS C
     Dosage: SC
     Route: 058
     Dates: start: 20080815
  2. RIBAVIRIN [Suspect]
     Indication: HEPATITIS C
     Dosage: PO
     Route: 048
     Dates: start: 20080815

REACTIONS (9)
  - ANXIETY [None]
  - DEHYDRATION [None]
  - DYSPHONIA [None]
  - DYSPNOEA [None]
  - LYMPHADENOPATHY [None]
  - STOMATITIS [None]
  - TRICHOTILLOMANIA [None]
  - VOMITING [None]
  - WHITE BLOOD CELL COUNT DECREASED [None]
